FAERS Safety Report 5752118-9 (Version None)
Quarter: 2008Q2

REPORT INFORMATION
  Report Type: 
  Country: None (occurrence: None)
  Receive Date: 20080529
  Receipt Date: 20080521
  Transmission Date: 20081010
  Serious: Yes (Other)
  Sender: FDA-Public Use
  Company Number: JP-AVENTIS-200813991GDDC

PATIENT
  Age: 47 Year
  Sex: Male

DRUGS (1)
  1. RIFAMPICIN [Suspect]

REACTIONS (1)
  - INTESTINAL OBSTRUCTION [None]
